FAERS Safety Report 12337811 (Version 1)
Quarter: 2016Q2

REPORT INFORMATION
  Report Type: Spontaneous
  Country: SE (occurrence: SE)
  Receive Date: 20160505
  Receipt Date: 20160505
  Transmission Date: 20160815
  Serious: Yes (Other)
  Sender: FDA-Public Use
  Company Number: SE-VALIDUS PHARMACEUTICALS LLC-SE-2016VAL001280

PATIENT
  Age: 34 Year
  Sex: Male

DRUGS (15)
  1. CARBAMAZEPINE. [Suspect]
     Active Substance: CARBAMAZEPINE
     Indication: APHASIA
  2. ZUCLOPENTIXOL [Suspect]
     Active Substance: ZUCLOPENTHIXOL
     Indication: AGGRESSION
     Dosage: UNK
  3. TETRABENAZINE. [Suspect]
     Active Substance: TETRABENAZINE
     Indication: AGGRESSION
     Dosage: UNK
  4. ZUCLOPENTIXOL [Suspect]
     Active Substance: ZUCLOPENTHIXOL
     Indication: APHASIA
  5. CARBAMAZEPINE. [Suspect]
     Active Substance: CARBAMAZEPINE
     Indication: SEIZURE
  6. ZUCLOPENTIXOL [Suspect]
     Active Substance: ZUCLOPENTHIXOL
     Indication: SEIZURE
  7. ZUCLOPENTIXOL [Suspect]
     Active Substance: ZUCLOPENTHIXOL
     Indication: DYSPHAGIA
  8. CARBAMAZEPINE. [Suspect]
     Active Substance: CARBAMAZEPINE
     Indication: DEMENTIA
  9. CARBAMAZEPINE. [Suspect]
     Active Substance: CARBAMAZEPINE
     Indication: DYSPHAGIA
  10. TETRABENAZINE. [Suspect]
     Active Substance: TETRABENAZINE
     Indication: DEMENTIA
  11. CARBAMAZEPINE. [Suspect]
     Active Substance: CARBAMAZEPINE
     Indication: AGGRESSION
     Dosage: UNK
  12. TETRABENAZINE. [Suspect]
     Active Substance: TETRABENAZINE
     Indication: SEIZURE
  13. TETRABENAZINE. [Suspect]
     Active Substance: TETRABENAZINE
     Indication: APHASIA
  14. TETRABENAZINE. [Suspect]
     Active Substance: TETRABENAZINE
     Indication: DYSPHAGIA
  15. ZUCLOPENTIXOL [Suspect]
     Active Substance: ZUCLOPENTHIXOL
     Indication: DEMENTIA

REACTIONS (4)
  - Muscle rigidity [Unknown]
  - Bradykinesia [Unknown]
  - Torticollis [Unknown]
  - Posture abnormal [Unknown]
